FAERS Safety Report 13393693 (Version 6)
Quarter: 2017Q3

REPORT INFORMATION
  Report Type: Report from Study
  Country: US (occurrence: US)
  Receive Date: 20170331
  Receipt Date: 20170717
  Transmission Date: 20171127
  Serious: Yes (Life-Threatening, Hospitalization)
  Sender: FDA-Public Use
  Company Number: US-ACTELION-A-US2017-148887

PATIENT
  Age: 18 Year
  Sex: Male

DRUGS (5)
  1. TRACLEER [Suspect]
     Active Substance: BOSENTAN
     Dosage: 125 MG, BID
     Route: 048
  2. SILDENAFIL. [Concomitant]
     Active Substance: SILDENAFIL
  3. TRACLEER [Suspect]
     Active Substance: BOSENTAN
     Indication: PULMONARY ARTERIAL HYPERTENSION
     Dosage: 62.5 MG, BID
     Route: 048
     Dates: start: 20170104
  4. FUROSEMIDE. [Concomitant]
     Active Substance: FUROSEMIDE
  5. MELATONIN [Concomitant]
     Active Substance: MELATONIN

REACTIONS (9)
  - Cardiac ablation [Recovering/Resolving]
  - Device malfunction [Unknown]
  - Hypotension [Not Recovered/Not Resolved]
  - Arrhythmia supraventricular [Unknown]
  - Resuscitation [Recovered/Resolved]
  - Arterial stent insertion [Recovering/Resolving]
  - Pneumonia [Not Recovered/Not Resolved]
  - Loss of consciousness [Recovered/Resolved]
  - Arrhythmia [Recovering/Resolving]

NARRATIVE: CASE EVENT DATE: 20170119
